FAERS Safety Report 12010430 (Version 1)
Quarter: 2016Q1

REPORT INFORMATION
  Report Type: Spontaneous
  Country: SE (occurrence: SE)
  Receive Date: 20160205
  Receipt Date: 20160205
  Transmission Date: 20160526
  Serious: Yes (Other)
  Sender: FDA-Public Use
  Company Number: SE-PFIZER INC-2016062398

PATIENT
  Age: 31 Year
  Sex: Male

DRUGS (5)
  1. VENLAFAXINE HCL [Suspect]
     Active Substance: VENLAFAXINE HYDROCHLORIDE
     Indication: DEPRESSION
     Dosage: 150 MG, DAILY
  2. SERTRALINE HCL [Suspect]
     Active Substance: SERTRALINE HYDROCHLORIDE
     Indication: DEPRESSION
  3. VENLAFAXINE HCL [Suspect]
     Active Substance: VENLAFAXINE HYDROCHLORIDE
     Indication: ANXIETY
     Dosage: 75 MG, DAILY
  4. SERTRALINE HCL [Suspect]
     Active Substance: SERTRALINE HYDROCHLORIDE
     Indication: ANXIETY
     Dosage: 50 MG, DAILY
  5. TRIENTINE DIHYDROCHLORIDE [Concomitant]
     Indication: HEPATO-LENTICULAR DEGENERATION
     Dosage: UNK

REACTIONS (7)
  - Dystonia [Unknown]
  - Dysarthria [Unknown]
  - Action tremor [Unknown]
  - Diplopia [Unknown]
  - Asthenia [Unknown]
  - Gait disturbance [Unknown]
  - Blepharospasm [Unknown]
